FAERS Safety Report 22196091 (Version 2)
Quarter: 2023Q2

REPORT INFORMATION
  Report Type: Spontaneous
  Country: PL (occurrence: PL)
  Receive Date: 20230411
  Receipt Date: 20230424
  Transmission Date: 20230721
  Serious: Yes (Other)
  Sender: FDA-Public Use
  Company Number: PL-002147023-NVSC2023PL078082

PATIENT

DRUGS (2)
  1. RUXOLITINIB [Suspect]
     Active Substance: RUXOLITINIB
     Indication: Polycythaemia vera
     Dosage: 20 MG, BID, (2 X 20 MG DAILY)
     Route: 065
     Dates: start: 202003
  2. RUXOLITINIB [Suspect]
     Active Substance: RUXOLITINIB
     Dosage: 40 MG DAILY
     Route: 065

REACTIONS (7)
  - Anaemia [Unknown]
  - COVID-19 pneumonia [Unknown]
  - Cestode infection [Unknown]
  - Hyperuricaemia [Unknown]
  - Leukocytosis [Unknown]
  - Cyst [Unknown]
  - Platelet count increased [Unknown]

NARRATIVE: CASE EVENT DATE: 20201101
